FAERS Safety Report 25701813 (Version 1)
Quarter: 2025Q3

REPORT INFORMATION
  Report Type: Report from Study
  Country: US (occurrence: US)
  Receive Date: 20250819
  Receipt Date: 20250819
  Transmission Date: 20251020
  Serious: Yes (Other)
  Sender: ALNYLAM PHARMACEUTICALS
  Company Number: US-ALNYLAM PHARMACEUTICALS, INC.-ALN-2025-005022

PATIENT

DRUGS (2)
  1. OXLUMO [Suspect]
     Active Substance: LUMASIRAN
     Indication: Primary hyperoxaluria
     Route: 065
     Dates: start: 20220429, end: 20220429
  2. OXLUMO [Suspect]
     Active Substance: LUMASIRAN
     Route: 065
     Dates: start: 202505, end: 202505

REACTIONS (5)
  - Nephrolithiasis [Unknown]
  - Urine oxalate increased [Unknown]
  - Protein urine present [Unknown]
  - Blood urine present [Unknown]
  - Intentional product use issue [Unknown]

NARRATIVE: CASE EVENT DATE: 20250101
